FAERS Safety Report 11950545 (Version 2)
Quarter: 2016Q1

REPORT INFORMATION
  Report Type: Spontaneous
  Country: US (occurrence: US)
  Receive Date: 20160126
  Receipt Date: 20160204
  Transmission Date: 20160526
  Serious: No
  Sender: FDA-Public Use
  Company Number: US-PFIZER INC-2016027701

PATIENT
  Sex: Female

DRUGS (1)
  1. BOSULIF [Suspect]
     Active Substance: BOSUTINIB MONOHYDRATE
     Dosage: UNK

REACTIONS (12)
  - Abdominal discomfort [Unknown]
  - Fatigue [Unknown]
  - Hepatic enzyme increased [Unknown]
  - Mood altered [Unknown]
  - Depression [Unknown]
  - Sinus disorder [Unknown]
  - Memory impairment [Unknown]
  - Libido decreased [Unknown]
  - Nausea [Unknown]
  - Eye irritation [Unknown]
  - Pain [Unknown]
  - Dry eye [Unknown]
